FAERS Safety Report 10745009 (Version 2)
Quarter: 2015Q1

REPORT INFORMATION
  Report Type: Spontaneous
  Country: US (occurrence: US)
  Receive Date: 20150128
  Receipt Date: 20150323
  Transmission Date: 20150721
  Serious: No
  Sender: FDA-Public Use
  Company Number: US-009507513-1501USA010913

PATIENT

DRUGS (2)
  1. PROSCAR [Suspect]
     Active Substance: FINASTERIDE
     Route: 048
  2. PROSCAR [Suspect]
     Active Substance: FINASTERIDE
     Route: 048

REACTIONS (1)
  - Haematuria [Unknown]
